FAERS Safety Report 9711698 (Version 1)
Quarter: 2013Q4

REPORT INFORMATION
  Report Type: Spontaneous
  Country: US (occurrence: None)
  Receive Date: 20131125
  Receipt Date: 20131125
  Transmission Date: 20140711
  Serious: Yes (Other)
  Sender: FDA-Public Use
  Company Number: None

PATIENT
  Sex: Female
  Weight: 52.62 kg

DRUGS (1)
  1. MINASTRIN 24 FE [Suspect]

REACTIONS (4)
  - Acne cystic [None]
  - Facial pain [None]
  - Scar [None]
  - Product substitution issue [None]
